FAERS Safety Report 5431452-6 (Version None)
Quarter: 2007Q3

REPORT INFORMATION
  Report Type: 
  Country: None (occurrence: None)
  Receive Date: 20070830
  Receipt Date: 20070622
  Transmission Date: 20080115
  Serious: No
  Sender: FDA-Public Use
  Company Number: A0659708A

PATIENT
  Age: 22 Year
  Sex: Male

DRUGS (4)
  1. WELLBUTRIN XL [Suspect]
     Indication: DEPRESSION
     Dosage: 150MG PER DAY
     Route: 048
     Dates: start: 20070530
  2. CELEXA [Concomitant]
  3. LORAZEPAM [Concomitant]
  4. NASONEX [Concomitant]

REACTIONS (1)
  - INSOMNIA [None]
